FAERS Safety Report 15272844 (Version 2)
Quarter: 2018Q3

REPORT INFORMATION
  Report Type: Report from Study
  Country: US (occurrence: US)
  Receive Date: 20180813
  Receipt Date: 20180904
  Transmission Date: 20181010
  Serious: Yes (Death, Hospitalization, Other)
  Sender: FDA-Public Use
  Company Number: PHEH2018US033180

PATIENT
  Age: 76 Year
  Sex: Male
  Weight: 85.8 kg

DRUGS (3)
  1. TRAZODONE [Concomitant]
     Active Substance: TRAZODONE HYDROCHLORIDE
     Indication: PRODUCT USED FOR UNKNOWN INDICATION
     Dosage: 50 MG, UNK
     Route: 048
     Dates: start: 20180514
  2. PROBIOTIC [Concomitant]
     Active Substance: PROBIOTICS NOS
     Indication: PRODUCT USED FOR UNKNOWN INDICATION
     Dosage: 5 BILL.CELL
     Route: 048
     Dates: start: 201804
  3. ENTRESTO [Suspect]
     Active Substance: SACUBITRIL\VALSARTAN
     Indication: PRODUCT USED FOR UNKNOWN INDICATION
     Route: 048

REACTIONS (9)
  - Chest pain [Fatal]
  - Nausea [Fatal]
  - Metabolic acidosis [Unknown]
  - Respiratory distress [Unknown]
  - Troponin increased [Unknown]
  - Medical device site infection [Fatal]
  - Hyperhidrosis [Fatal]
  - Dyspnoea [Fatal]
  - Hypotension [Unknown]

NARRATIVE: CASE EVENT DATE: 20180530
